FAERS Safety Report 24198945 (Version 2)
Quarter: 2024Q3

REPORT INFORMATION
  Report Type: Report from Study
  Country: US (occurrence: US)
  Receive Date: 20240812
  Receipt Date: 20240816
  Transmission Date: 20241017
  Serious: Yes (Hospitalization, Other)
  Sender: ABBVIE
  Company Number: US-ABBVIE-5874823

PATIENT
  Age: 63 Year
  Sex: Female
  Weight: 104.32 kg

DRUGS (4)
  1. SKYRIZI [Suspect]
     Active Substance: RISANKIZUMAB-RZAA
     Indication: Psoriasis
     Route: 058
     Dates: start: 20230310
  2. IRON [Concomitant]
     Active Substance: IRON
     Indication: Blood iron decreased
     Dosage: INFUSION
  3. XIFAXAN [Concomitant]
     Active Substance: RIFAXIMIN
     Indication: Hepatic cirrhosis
  4. LACTULOSE [Concomitant]
     Active Substance: LACTULOSE
     Indication: Hepatic cirrhosis

REACTIONS (3)
  - Myocardial infarction [Recovering/Resolving]
  - Swelling [Not Recovered/Not Resolved]
  - Myocardial injury [Recovering/Resolving]

NARRATIVE: CASE EVENT DATE: 20240201
